FAERS Safety Report 17356568 (Version 2)
Quarter: 2020Q1

REPORT INFORMATION
  Report Type: Spontaneous
  Country: DE (occurrence: DE)
  Receive Date: 20200131
  Receipt Date: 20200225
  Transmission Date: 20200409
  Serious: No
  Sender: FDA-Public Use
  Company Number: DE-AMGEN-DEUSP2020014374

PATIENT
  Age: 31 Year
  Sex: Male
  Weight: 93 kg

DRUGS (5)
  1. ARANESP [Suspect]
     Active Substance: DARBEPOETIN ALFA
     Indication: PRODUCT USED FOR UNKNOWN INDICATION
     Dosage: 160 MICROGRAM
     Route: 042
  2. ARANESP [Suspect]
     Active Substance: DARBEPOETIN ALFA
     Dosage: 60 MICROGRAM, QWK
     Route: 042
     Dates: start: 20190902, end: 2019
  3. ARANESP [Suspect]
     Active Substance: DARBEPOETIN ALFA
     Dosage: 40 MICROGRAM, QWK
     Route: 042
     Dates: start: 20180929
  4. ARANESP [Suspect]
     Active Substance: DARBEPOETIN ALFA
     Dosage: 30 MICROGRAM, QWK
     Route: 042
     Dates: start: 20190515, end: 2019
  5. ARANESP [Suspect]
     Active Substance: DARBEPOETIN ALFA
     Dosage: 130 MICROGRAM, QWK
     Route: 042
     Dates: start: 20191218, end: 20200115

REACTIONS (1)
  - Drug ineffective [Recovered/Resolved]
